FAERS Safety Report 9206533 (Version 1)
Quarter: 2013Q1

REPORT INFORMATION
  Report Type: Spontaneous
  Country: US (occurrence: None)
  Receive Date: 20120718
  Receipt Date: 20120718
  Transmission Date: 20140127
  Serious: Yes (Life-Threatening, Hospitalization, Disabling)
  Sender: FDA-Public Use
  Company Number: 2012SP018200

PATIENT
  Age: 70 Year
  Sex: Male

DRUGS (3)
  1. INTEGRILIN [Suspect]
     Indication: CHEST PAIN
     Route: 042
     Dates: start: 201203
  2. ASPIRIN [Concomitant]
  3. LOVENOX [Concomitant]

REACTIONS (3)
  - Hypotension [None]
  - Gastric haemorrhage [None]
  - Off label use [None]
